FAERS Safety Report 5489705-1 (Version None)
Quarter: 2007Q4

REPORT INFORMATION
  Report Type: 
  Country: None (occurrence: None)
  Receive Date: 20071017
  Receipt Date: 20071017
  Transmission Date: 20080405
  Serious: Yes (Life-Threatening, Hospitalization, Other)
  Sender: FDA-Public Use
  Company Number: None

PATIENT
  Sex: Female

DRUGS (5)
  1. MULTIHANCE [Suspect]
     Indication: NUCLEAR MAGNETIC RESONANCE IMAGING BRAIN
     Dosage: 15ML X1
     Dates: start: 20070928
  2. DIOVAN HCT [Concomitant]
  3. KEPPRA [Concomitant]
  4. TOPAMAX [Concomitant]
  5. XANAX [Concomitant]

REACTIONS (7)
  - BRADYCARDIA [None]
  - CARDIO-RESPIRATORY ARREST [None]
  - ERYTHEMA [None]
  - FEELING ABNORMAL [None]
  - FOAMING AT MOUTH [None]
  - NAUSEA [None]
  - TREMOR [None]
